FAERS Safety Report 7470456-9 (Version None)
Quarter: 2011Q2

REPORT INFORMATION
  Report Type: 
  Country: None (occurrence: None)
  Receive Date: 20110510
  Receipt Date: 20110427
  Transmission Date: 20111010
  Serious: Yes (Hospitalization)
  Sender: FDA-Public Use
  Company Number: JP-MERCK-1105USA00074

PATIENT
  Age: 82 Year
  Sex: Female

DRUGS (11)
  1. URINORM [Concomitant]
     Route: 048
  2. HIRUBULIN [Concomitant]
     Route: 048
  3. HICEE [Concomitant]
     Route: 048
  4. FOSAMAX [Suspect]
     Indication: OSTEOPOROSIS
     Route: 048
     Dates: end: 20100701
  5. ALINAMIN F (FURSULTIAMINE HYDROCHLORIDE) [Concomitant]
     Route: 048
  6. IRSOGLADINE MALEATE [Concomitant]
     Route: 048
  7. GASMOTIN [Concomitant]
     Route: 048
  8. LANSORAL [Concomitant]
     Route: 048
  9. VITAMIN E NICOTINATE [Concomitant]
     Route: 048
  10. MAGNESIUM OXIDE [Concomitant]
     Route: 048
  11. ASPIRIN [Concomitant]
     Route: 048

REACTIONS (1)
  - OSTEOMYELITIS [None]
